FAERS Safety Report 9764235 (Version 2)
Quarter: 2014Q1

REPORT INFORMATION
  Report Type: Report from Study
  Country: JP (occurrence: JP)
  Receive Date: 20131216
  Receipt Date: 20140303
  Transmission Date: 20141002
  Serious: Yes (Hospitalization)
  Sender: FDA-Public Use
  Company Number: JP-BRISTOL-MYERS SQUIBB COMPANY-19898386

PATIENT
  Age: 61 Year
  Sex: Male

DRUGS (14)
  1. BLINDED: IPILIMUMAB [Suspect]
     Indication: NON-SMALL CELL LUNG CANCER
     Route: 042
     Dates: start: 20131114, end: 20131114
  2. CARBOPLATIN [Suspect]
     Indication: NON-SMALL CELL LUNG CANCER
     Route: 042
     Dates: start: 20130926, end: 20131114
  3. PACLITAXEL [Suspect]
     Indication: NON-SMALL CELL LUNG CANCER
     Dosage: 26SEP13-17OCT13 310MG NO. OF COURSE 2?14NOV13 266MG NO. OF COURSE 1
     Route: 042
     Dates: start: 20130926, end: 20131114
  4. BLINDED: PLACEBO [Suspect]
     Indication: NON-SMALL CELL LUNG CANCER
     Route: 042
     Dates: start: 20131114, end: 20131114
  5. CALCIUM ASPARTATE [Concomitant]
     Dates: start: 20130702
  6. ALFACALCIDOL [Concomitant]
     Dates: start: 20130702
  7. GLIMEPIRIDE [Concomitant]
     Dates: start: 2011
  8. KETOPROFEN [Concomitant]
     Dates: start: 201307
  9. ZOPICLONE [Concomitant]
     Dates: start: 20130928
  10. ESOMEPRAZOLE MAGNESIUM TRIHYDRATE [Concomitant]
     Dosage: 20SEP13-
     Dates: start: 20130930
  11. METFORMIN HCL [Concomitant]
     Dates: start: 2011
  12. CROTAMITON [Concomitant]
  13. LEVOCETIRIZINE [Concomitant]
     Dosage: HCL
     Dates: start: 20131204
  14. PREDNISOLONE [Concomitant]
     Dates: start: 20131225, end: 20131227

REACTIONS (2)
  - Liver function test abnormal [Unknown]
  - Rash [Recovered/Resolved]
